FAERS Safety Report 18429742 (Version 3)
Quarter: 2021Q3

REPORT INFORMATION
  Report Type: Spontaneous
  Country: JP (occurrence: JP)
  Receive Date: 20201027
  Receipt Date: 20210819
  Transmission Date: 20211014
  Serious: Yes (Other)
  Sender: FDA-Public Use
  Company Number: JP-ROCHE-2702450

PATIENT
  Age: 34 Year
  Sex: Female

DRUGS (3)
  1. NUCALA [Concomitant]
     Active Substance: MEPOLIZUMAB
     Indication: PRODUCT USED FOR UNKNOWN INDICATION
     Dosage: UNK
     Route: 065
  2. XOLAIR [Suspect]
     Active Substance: OMALIZUMAB
     Indication: SEASONAL ALLERGY
     Dosage: UNK
     Route: 058
     Dates: start: 201910
  3. XOLAIR [Suspect]
     Active Substance: OMALIZUMAB
     Indication: ASTHMA
     Route: 058
     Dates: start: 201709, end: 201803

REACTIONS (6)
  - Abdominal symptom [Unknown]
  - Therapeutic product effect incomplete [Unknown]
  - Asthma [Recovering/Resolving]
  - Eosinophil count increased [Recovering/Resolving]
  - Rhinitis [Recovering/Resolving]
  - Condition aggravated [Recovering/Resolving]

NARRATIVE: CASE EVENT DATE: 201803
